FAERS Safety Report 9114368 (Version 2)
Quarter: 2014Q1

REPORT INFORMATION
  Report Type: Spontaneous
  Country: US (occurrence: US)
  Receive Date: 20130208
  Receipt Date: 20140115
  Transmission Date: 20141002
  Serious: Yes (Hospitalization, Other)
  Sender: FDA-Public Use
  Company Number: US-009507513-1302USA002330

PATIENT
  Sex: Female
  Weight: 72.56 kg

DRUGS (1)
  1. NUVARING [Suspect]
     Indication: CONTRACEPTION
     Dosage: UNK
     Route: 067
     Dates: start: 20061026, end: 20061220

REACTIONS (4)
  - Pulmonary embolism [Unknown]
  - Hypersensitivity [Unknown]
  - Blood cholesterol abnormal [Unknown]
  - Paronychia [Unknown]
